FAERS Safety Report 5481010-2 (Version None)
Quarter: 2007Q4

REPORT INFORMATION
  Report Type: 
  Country: None (occurrence: None)
  Receive Date: 20071009
  Receipt Date: 20070714
  Transmission Date: 20080405
  Serious: Yes (Other)
  Sender: FDA-Public Use
  Company Number: US-PFIZER INC-2007072038

PATIENT
  Sex: Female

DRUGS (3)
  1. LYRICA [Suspect]
     Indication: TREMOR
  2. LYRICA [Suspect]
     Indication: MUSCLE SPASTICITY
  3. LYRICA [Suspect]
     Indication: HYPOAESTHESIA

REACTIONS (2)
  - ASTHMA [None]
  - PARANOIA [None]
